FAERS Safety Report 18326957 (Version 1)
Quarter: 2020Q3

REPORT INFORMATION
  Report Type: Report from Study
  Country: NZ (occurrence: NZ)
  Receive Date: 20200930
  Receipt Date: 20200930
  Transmission Date: 20201103
  Serious: Yes (Other)
  Sender: FDA-Public Use
  Company Number: NZ-BEIGENE AUS PTY LTD-BGN-2020-000932

PATIENT

DRUGS (11)
  1. TAMOXIFEN [Concomitant]
     Active Substance: TAMOXIFEN
     Indication: INTRADUCTAL PROLIFERATIVE BREAST LESION
     Dosage: 20 MILLIGRAM, QD
     Route: 048
     Dates: start: 20190921
  2. LEVOTHYROXINE. [Concomitant]
     Active Substance: LEVOTHYROXINE
     Indication: HYPOTHYROIDISM
     Dosage: 100 MICROGRAM
     Route: 048
     Dates: start: 20110204, end: 20180204
  3. BGB?3111 [Suspect]
     Active Substance: ZANUBRUTINIB
     Dosage: 80 MILLIGRAM, BID
     Route: 048
     Dates: start: 20200714
  4. CODEINE [Concomitant]
     Active Substance: CODEINE
     Indication: PRODUCTIVE COUGH
     Dosage: 15 MILLIGRAM, PRN
     Route: 048
     Dates: start: 20180927
  5. COLLAGEN COMPLEX [Concomitant]
     Indication: PROPHYLAXIS
     Dosage: 6000 MILLIGRAM, QD
     Route: 048
     Dates: start: 20190302
  6. BGB?3111 [Suspect]
     Active Substance: ZANUBRUTINIB
     Indication: SPLENIC MARGINAL ZONE LYMPHOMA
     Dosage: 160 MILLIGRAM, BID
     Route: 048
     Dates: start: 20170622, end: 20200604
  7. BGB?3111 [Suspect]
     Active Substance: ZANUBRUTINIB
     Dosage: 160 UNK
     Route: 048
     Dates: start: 20200625, end: 20200714
  8. RANITIDINE. [Concomitant]
     Active Substance: RANITIDINE
     Indication: GASTROOESOPHAGEAL REFLUX DISEASE
     Dosage: 150 MILLIGRAM, BID
     Route: 048
     Dates: start: 20180627
  9. ZOPICLONE [Concomitant]
     Active Substance: ZOPICLONE
     Indication: INSOMNIA
     Dosage: 7.5 MILLIGRAM, PRN
     Route: 048
     Dates: start: 20111130
  10. PARACETAMOL [Concomitant]
     Active Substance: ACETAMINOPHEN
     Indication: PAIN
     Dosage: 1 GRAM, PRN
     Route: 048
     Dates: start: 20190808
  11. LEVOTHYROXINE. [Concomitant]
     Active Substance: LEVOTHYROXINE
     Dosage: 50 MICROGRAM
     Route: 048
     Dates: start: 20180204

REACTIONS (2)
  - Contusion [Recovered/Resolved]
  - Skin reaction [Recovered/Resolved]

NARRATIVE: CASE EVENT DATE: 20200204
